FAERS Safety Report 14327450 (Version 5)
Quarter: 2018Q1

REPORT INFORMATION
  Report Type: Spontaneous
  Country: IT (occurrence: IT)
  Receive Date: 20171227
  Receipt Date: 20180209
  Transmission Date: 20180509
  Serious: Yes (Other)
  Sender: FDA-Public Use
  Company Number: IT-BEH-2017086247

PATIENT
  Age: 75 Year
  Sex: Male

DRUGS (6)
  1. LYRICA [Concomitant]
     Active Substance: PREGABALIN
     Route: 065
  2. LORTAAN [Concomitant]
     Active Substance: LOSARTAN POTASSIUM
     Route: 065
  3. LANSOPRAZOLO SANDOZ [Concomitant]
     Route: 065
  4. PRIVIGEN [Suspect]
     Active Substance: HUMAN IMMUNOGLOBULIN G
     Indication: SECONDARY IMMUNODEFICIENCY
     Dosage: 5 G, TOT
     Route: 042
     Dates: start: 20170418, end: 20170418
  5. SELEPARINA [Concomitant]
     Active Substance: NADROPARIN CALCIUM
     Route: 065
  6. SOLDESAM [Concomitant]
     Active Substance: DEXAMETHASONE
     Route: 065

REACTIONS (2)
  - Feeling hot [Recovered/Resolved]
  - Paraesthesia [Recovered/Resolved]

NARRATIVE: CASE EVENT DATE: 20170418
